FAERS Safety Report 4358414-4 (Version None)
Quarter: 2004Q2

REPORT INFORMATION
  Report Type: 
  Country: None (occurrence: None)
  Receive Date: 20040511
  Receipt Date: 20040426
  Transmission Date: 20050107
  Serious: Yes (Hospitalization)
  Sender: FDA-Public Use
  Company Number: 206095

PATIENT
  Age: 60 Year
  Sex: Male

DRUGS (4)
  1. EFALIZUMAB OR PLACEBO (CODE NOT BROKEN) PWDR + SOLVENT, INJECTION SOLN [Suspect]
     Indication: PSORIASIS
     Dosage: 1 MG/KG, 1/WEEK, SUBCUTANEOUS
     Route: 058
     Dates: start: 20030903, end: 20031120
  2. EFALIZUMAB OR PLACEBO (CODE NOT BROKEN) PWDR + SOLVENT, INJECTION SOLN [Suspect]
     Indication: PSORIASIS
     Dosage: 1 MG/KG, 1/WEEK, SUBCUTANEOUS
     Route: 058
     Dates: start: 20030101, end: 20040211
  3. CYCLOPHOSPHAMIDE [Concomitant]
  4. METHYLPREDNISOLONE [Concomitant]

REACTIONS (2)
  - HERPES ZOSTER [None]
  - THROMBOCYTOPENIA [None]
